FAERS Safety Report 16718209 (Version 1)
Quarter: 2019Q3

REPORT INFORMATION
  Report Type: Spontaneous
  Country: US (occurrence: US)
  Receive Date: 20190820
  Receipt Date: 20190820
  Transmission Date: 20191005
  Serious: No
  Sender: FDA-Public Use
  Company Number: US-GLENMARK PHARMACEUTICALS-2019GMK042022

PATIENT
  Age: 76 Year
  Sex: Female

DRUGS (1)
  1. DESONIDE CREAM [Suspect]
     Active Substance: DESONIDE
     Indication: FUNGAL SKIN INFECTION
     Dosage: UNK, BID (TWICE A DAY)
     Route: 061
     Dates: start: 20190628, end: 20190629

REACTIONS (9)
  - Mydriasis [Recovered/Resolved]
  - Blood glucose increased [Unknown]
  - Therapy cessation [Unknown]
  - Dizziness [Recovered/Resolved]
  - Tongue blistering [Recovered/Resolved]
  - Nausea [Recovered/Resolved]
  - Feeling abnormal [Recovered/Resolved]
  - Balance disorder [Recovered/Resolved]
  - Drug effective for unapproved indication [Unknown]

NARRATIVE: CASE EVENT DATE: 20190628
